FAERS Safety Report 5315247-X (Version None)
Quarter: 2007Q2

REPORT INFORMATION
  Report Type: 
  Country: None (occurrence: None)
  Receive Date: 20070427
  Receipt Date: 20070424
  Transmission Date: 20071010
  Serious: Yes (Other)
  Sender: FDA-Public Use
  Company Number: 0704-303

PATIENT
  Age: 17 Year
  Sex: Male

DRUGS (1)
  1. ALBUTEROL SULATE [Suspect]

REACTIONS (2)
  - LACTIC ACIDOSIS [None]
  - METABOLIC ACIDOSIS [None]
